FAERS Safety Report 16965095 (Version 1)
Quarter: 2019Q4

REPORT INFORMATION
  Report Type: Spontaneous
  Country: US (occurrence: US)
  Receive Date: 20191028
  Receipt Date: 20191028
  Transmission Date: 20200122
  Serious: No
  Sender: FDA-Public Use
  Company Number: US-MYLANLABS-2019M1096908

PATIENT
  Age: 40 Year
  Sex: Male
  Weight: 57 kg

DRUGS (3)
  1. LITHIUM CARBONATE EXTENDED-RELEASE TABLETS, USP [Suspect]
     Active Substance: LITHIUM CARBONATE
     Indication: MENTAL DISORDER
     Dosage: 450 MILLIGRAM, BID
     Route: 048
     Dates: start: 20190912, end: 20190922
  2. LITHIUM CARBONATE EXTENDED-RELEASE TABLETS, USP [Suspect]
     Active Substance: LITHIUM CARBONATE
     Indication: BIPOLAR DISORDER
  3. LITHIUM CARBONATE EXTENDED-RELEASE TABLETS, USP [Suspect]
     Active Substance: LITHIUM CARBONATE
     Indication: SCHIZOPHRENIA

REACTIONS (4)
  - Weight decreased [Recovered/Resolved]
  - Somnolence [Recovered/Resolved]
  - Abnormal behaviour [Recovered/Resolved]
  - Psychomotor hyperactivity [Recovered/Resolved]

NARRATIVE: CASE EVENT DATE: 201909
